FAERS Safety Report 10206454 (Version 1)
Quarter: 2014Q2

REPORT INFORMATION
  Report Type: Spontaneous
  Country: US (occurrence: None)
  Receive Date: 20140527
  Receipt Date: 20140527
  Transmission Date: 20141212
  Serious: Yes (Hospitalization)
  Sender: FDA-Public Use
  Company Number: None

PATIENT
  Age: 61 Year
  Sex: Male
  Weight: 97.52 kg

DRUGS (1)
  1. LIORESAL [Suspect]
     Indication: GAIT DISTURBANCE
     Dosage: VARIOUS CONTINOUS MEDTRONICS INTRATHECAL PUMP
     Dates: start: 20130328, end: 20140505

REACTIONS (4)
  - Drug ineffective [None]
  - Joint swelling [None]
  - Peripheral swelling [None]
  - Pulmonary thrombosis [None]
